FAERS Safety Report 15168938 (Version 1)
Quarter: 2018Q3

REPORT INFORMATION
  Report Type: Spontaneous
  Country: US (occurrence: US)
  Receive Date: 20180720
  Receipt Date: 20180720
  Transmission Date: 20181010
  Serious: No
  Sender: FDA-Public Use
  Company Number: US-LUPIN PHARMACEUTICALS INC.-2017-07433

PATIENT
  Sex: Male

DRUGS (1)
  1. GAVILYTE G [Suspect]
     Active Substance: POLYETHYLENE GLYCOL 3350\POTASSIUM CHLORIDE\SODIUM BICARBONATE\SODIUM CHLORIDE\SODIUM SULFATE ANHYDROUS
     Indication: BOWEL PREPARATION
     Dosage: UNK UNK, SINGLE
     Route: 048

REACTIONS (5)
  - Pain [Unknown]
  - Fatigue [Unknown]
  - Gastrointestinal hypomotility [Unknown]
  - Constipation [Unknown]
  - Abdominal pain [Unknown]

NARRATIVE: CASE EVENT DATE: 20171118
